FAERS Safety Report 8226870-7 (Version None)
Quarter: 2012Q1

REPORT INFORMATION
  Report Type: 
  Country: None (occurrence: None)
  Receive Date: 20120322
  Receipt Date: 20120314
  Transmission Date: 20120608
  Serious: Yes (Hospitalization)
  Sender: FDA-Public Use
  Company Number: US-BAYER-2011-035592

PATIENT
  Age: 45 Year
  Sex: Female
  Weight: 70.295 kg

DRUGS (2)
  1. DROSPIRENONE AND ETHINYL ESTRADIOL [Suspect]
     Indication: MENOPAUSAL SYMPTOMS
  2. DROSPIRENONE AND ETHINYL ESTRADIOL [Suspect]
     Indication: PREMENSTRUAL SYNDROME
     Dosage: UNK
     Dates: start: 20081201, end: 20090401

REACTIONS (3)
  - DEEP VEIN THROMBOSIS [None]
  - ANXIETY [None]
  - EMOTIONAL DISTRESS [None]
